FAERS Safety Report 23864050 (Version 1)
Quarter: 2024Q2

REPORT INFORMATION
  Report Type: Spontaneous
  Country: US (occurrence: US)
  Receive Date: 20240516
  Receipt Date: 20240516
  Transmission Date: 20240715
  Serious: Yes (Other)
  Sender: FDA-Public Use
  Company Number: US-PHATHOM PHARMACEUTICALS INC.-2024PHT00228

PATIENT
  Sex: Male

DRUGS (7)
  1. VOQUEZNA [Suspect]
     Active Substance: VONOPRAZAN FUMARATE
     Indication: Erosive oesophagitis
     Dosage: 20 MG, 1X/DAY
     Route: 048
     Dates: start: 202403, end: 20240416
  2. VOQUEZNA [Suspect]
     Active Substance: VONOPRAZAN FUMARATE
     Indication: Gastrooesophageal reflux disease
  3. GLUCOPHAGE [Concomitant]
     Active Substance: METFORMIN HYDROCHLORIDE
  4. WARFARIN [Concomitant]
     Active Substance: WARFARIN
  5. ROSUVASTATIN [Concomitant]
     Active Substance: ROSUVASTATIN
  6. GABAPENTIN [Concomitant]
     Active Substance: GABAPENTIN
  7. ZONISAMIDE [Concomitant]
     Active Substance: ZONISAMIDE

REACTIONS (4)
  - Seizure [Unknown]
  - Myalgia [Unknown]
  - Anxiety [Unknown]
  - Abdominal discomfort [Unknown]

NARRATIVE: CASE EVENT DATE: 20240101
